FAERS Safety Report 8734450 (Version 3)
Quarter: 2013Q3

REPORT INFORMATION
  Report Type: Spontaneous
  Country: US (occurrence: MX)
  Receive Date: 20120821
  Receipt Date: 20130731
  Transmission Date: 20140515
  Serious: Yes (Hospitalization)
  Sender: FDA-Public Use
  Company Number: US-GLAXOSMITHKLINE-A0989383A

PATIENT
  Age: 64 Year
  Sex: Male

DRUGS (12)
  1. IMITREX [Suspect]
     Indication: CLUSTER HEADACHE
     Dosage: 6MG PER DAY
     Route: 058
     Dates: start: 199507, end: 20120720
  2. DEVICE [Suspect]
     Indication: MIGRAINE
     Route: 058
  3. SUMATRIPTAN [Suspect]
     Indication: PRODUCT USED FOR UNKNOWN INDICATION
     Route: 065
  4. XANAX [Concomitant]
  5. CELEBREX [Concomitant]
  6. SYNTHROID [Concomitant]
  7. PERCOCET [Concomitant]
  8. SIMVASTATIN [Concomitant]
  9. OXYBUTYNIN [Concomitant]
  10. BUPROPION HYDROCHLORIDE [Concomitant]
  11. TERAZOSIN [Concomitant]
  12. ANDRODERM [Concomitant]
     Route: 062

REACTIONS (10)
  - Angina pectoris [Not Recovered/Not Resolved]
  - Coronary artery occlusion [Unknown]
  - Mitral valve incompetence [Unknown]
  - Tricuspid valve incompetence [Unknown]
  - Muscle tightness [Unknown]
  - Chest discomfort [Unknown]
  - Flushing [Unknown]
  - Coronary artery disease [Unknown]
  - Adverse reaction [Unknown]
  - Incorrect dose administered [Recovered/Resolved]
